FAERS Safety Report 8537325-4 (Version None)
Quarter: 2012Q3

REPORT INFORMATION
  Report Type: 
  Country: None (occurrence: None)
  Receive Date: 20120725
  Receipt Date: 20120718
  Transmission Date: 20120928
  Serious: No
  Sender: FDA-Public Use
  Company Number: US-BAYER-2012-072796

PATIENT
  Age: 88 Year
  Sex: Female
  Weight: 72.562 kg

DRUGS (3)
  1. ALEVE (CAPLET) [Suspect]
     Indication: BACK PAIN
     Dosage: 3 DF, UNK
     Route: 048
     Dates: start: 20120401, end: 20120501
  2. THYROID TAB [Concomitant]
  3. 20 MG ANIPRAZOL [Concomitant]

REACTIONS (1)
  - BACK PAIN [None]
